FAERS Safety Report 16149416 (Version 2)
Quarter: 2019Q2

REPORT INFORMATION
  Report Type: Spontaneous
  Country: JP (occurrence: JP)
  Receive Date: 20190402
  Receipt Date: 20190506
  Transmission Date: 20190711
  Serious: Yes (Hospitalization)
  Sender: FDA-Public Use
  Company Number: JP-ELI_LILLY_AND_COMPANY-JP201903014428

PATIENT
  Age: 69 Year
  Sex: Male

DRUGS (12)
  1. ROSUVASTATIN. [Concomitant]
     Active Substance: ROSUVASTATIN
     Indication: PERCUTANEOUS CORONARY INTERVENTION
     Dosage: 2.5 MG, DAILY
     Route: 048
  2. TOPILORIC [Concomitant]
     Active Substance: TOPIROXOSTAT
     Indication: PRODUCT USED FOR UNKNOWN INDICATION
  3. PRASUGREL HYDROCHLORIDE [Suspect]
     Active Substance: PRASUGREL HYDROCHLORIDE
     Indication: ACUTE CORONARY SYNDROME
     Dosage: 3.75 MG, DAILY
     Route: 048
     Dates: start: 20190302, end: 20190318
  4. FAMOTIDINE. [Concomitant]
     Active Substance: FAMOTIDINE
     Dosage: UNK, BID (1 DF, BID )
     Route: 048
     Dates: start: 20190321
  5. BAYASPIRIN [Concomitant]
     Active Substance: ASPIRIN
     Indication: PERCUTANEOUS CORONARY INTERVENTION
     Dosage: 100 MG, DAILY
     Route: 048
  6. RENALTIN [Concomitant]
     Indication: PRODUCT USED FOR UNKNOWN INDICATION
     Dosage: UNK, BID (1 DF, BID)
     Route: 048
  7. FAMOTIDINE. [Concomitant]
     Active Substance: FAMOTIDINE
     Indication: PRODUCT USED FOR UNKNOWN INDICATION
     Dosage: UNK, BID (1 DF, BID )
     Route: 048
  8. PRASUGREL HYDROCHLORIDE [Suspect]
     Active Substance: PRASUGREL HYDROCHLORIDE
     Indication: PERCUTANEOUS CORONARY INTERVENTION
     Dosage: 3.75 MG, DAILY
     Route: 048
  9. TRAMCET [Concomitant]
     Active Substance: ACETAMINOPHEN\TRAMADOL
     Indication: PRODUCT USED FOR UNKNOWN INDICATION
     Dosage: UNK UNK, TID (2 DF)
     Route: 048
  10. MOSAPRIDE CITRATE [Concomitant]
     Active Substance: MOSAPRIDE CITRATE
     Indication: PRODUCT USED FOR UNKNOWN INDICATION
     Dosage: 5 MG, BID
  11. NITROPEN [Concomitant]
     Active Substance: NITROGLYCERIN
     Indication: PERCUTANEOUS CORONARY INTERVENTION
     Dosage: 0.3 MG, PRN
     Route: 048
  12. LYRICA [Concomitant]
     Active Substance: PREGABALIN
     Indication: PRODUCT USED FOR UNKNOWN INDICATION
     Dosage: 112.5 MG, BID
     Route: 048

REACTIONS (1)
  - Liver disorder [Recovering/Resolving]

NARRATIVE: CASE EVENT DATE: 20190309
